FAERS Safety Report 4639189-8 (Version None)
Quarter: 2005Q2

REPORT INFORMATION
  Report Type: 
  Country: None (occurrence: None)
  Receive Date: 20050418
  Receipt Date: 20010314
  Transmission Date: 20051028
  Serious: No
  Sender: FDA-Public Use
  Company Number: 2001SE02468

PATIENT
  Age: 34 Year
  Sex: Female
  Weight: 87 kg

DRUGS (5)
  1. SEROQUEL [Suspect]
     Indication: DELIRIUM
     Dosage: 200 MG DAILY PO
     Route: 048
     Dates: start: 20001002, end: 20001228
  2. REXER [Concomitant]
  3. IDALPREM [Concomitant]
  4. SOMNOVIT [Concomitant]
  5. AKINETON [Concomitant]

REACTIONS (3)
  - CHOLESTASIS [None]
  - HYPERGLYCAEMIA [None]
  - HYPERTRIGLYCERIDAEMIA [None]
